FAERS Safety Report 15381184 (Version 4)
Quarter: 2019Q4

REPORT INFORMATION
  Report Type: Report from Study
  Country: GB (occurrence: GB)
  Receive Date: 20180913
  Receipt Date: 20191219
  Transmission Date: 20200122
  Serious: Yes (Other)
  Sender: FDA-Public Use
  Company Number: PHHY2018GB078357

PATIENT
  Sex: Female

DRUGS (1)
  1. COSENTYX [Suspect]
     Active Substance: SECUKINUMAB
     Indication: PSORIASIS
     Dosage: 300 MG, QMO
     Route: 058
     Dates: start: 20180130

REACTIONS (4)
  - Nasopharyngitis [Unknown]
  - Cough [Unknown]
  - Lower respiratory tract infection [Recovering/Resolving]
  - Infection susceptibility increased [Unknown]

NARRATIVE: CASE EVENT DATE: 201801
